FAERS Safety Report 9221670 (Version 1)
Quarter: 2013Q2

REPORT INFORMATION
  Report Type: Spontaneous
  Country: US (occurrence: US)
  Receive Date: 20130410
  Receipt Date: 20130410
  Transmission Date: 20140414
  Serious: Yes (Hospitalization)
  Sender: FDA-Public Use
  Company Number: US-JNJFOC-20130401022

PATIENT
  Age: 15 Year
  Sex: Male
  Weight: 99.34 kg

DRUGS (2)
  1. INVEGA [Suspect]
     Indication: AGGRESSION
     Route: 048
     Dates: start: 201208
  2. DEPAKOTE [Concomitant]
     Indication: PRODUCT USED FOR UNKNOWN INDICATION
     Route: 048

REACTIONS (4)
  - Aggression [Recovered/Resolved]
  - Treatment noncompliance [Recovered/Resolved]
  - Aggression [Recovered/Resolved]
  - Off label use [Unknown]
